FAERS Safety Report 22312443 (Version 1)
Quarter: 2023Q2

REPORT INFORMATION
  Report Type: Spontaneous
  Country: US (occurrence: US)
  Receive Date: 20230512
  Receipt Date: 20230512
  Transmission Date: 20230722
  Serious: No
  Sender: FDA-Public Use
  Company Number: US-SUN PHARMACEUTICAL INDUSTRIES LTD-2022R1-362579

PATIENT
  Age: 74 Year
  Sex: Female

DRUGS (1)
  1. ILUMYA [Suspect]
     Active Substance: TILDRAKIZUMAB-ASMN
     Indication: Product used for unknown indication
     Route: 065

REACTIONS (2)
  - Pyrexia [Unknown]
  - Abdominal pain upper [Unknown]
